FAERS Safety Report 21504063 (Version 5)
Quarter: 2023Q2

REPORT INFORMATION
  Report Type: Spontaneous
  Country: CA (occurrence: CA)
  Receive Date: 20221025
  Receipt Date: 20230629
  Transmission Date: 20230721
  Serious: Yes (Other)
  Sender: FDA-Public Use
  Company Number: CA-BAUSCH-BL-2022-023714

PATIENT
  Age: 25 Year
  Sex: Female
  Weight: 96 kg

DRUGS (40)
  1. CONTRAVE [Suspect]
     Active Substance: BUPROPION HYDROCHLORIDE\NALTREXONE HYDROCHLORIDE
     Indication: Weight control
     Dosage: 90/8MG
     Route: 048
  2. CONTRAVE [Suspect]
     Active Substance: BUPROPION HYDROCHLORIDE\NALTREXONE HYDROCHLORIDE
     Dosage: 90/8MG TABLET (EXTENDEDRELEASE)
     Route: 048
  3. CONTRAVE [Suspect]
     Active Substance: BUPROPION HYDROCHLORIDE\NALTREXONE HYDROCHLORIDE
     Dosage: 90/8MG (1 DOSAGE FORMS,1 IN 1 D)
     Route: 048
  4. CONTRAVE [Suspect]
     Active Substance: BUPROPION HYDROCHLORIDE\NALTREXONE HYDROCHLORIDE
     Dosage: 90/8MG TABLET (EXTENDEDRELEASE) (1 DOSAGE FORMS,1 IN 1 D)
     Route: 048
  5. CONTRAVE [Suspect]
     Active Substance: BUPROPION HYDROCHLORIDE\NALTREXONE HYDROCHLORIDE
     Dosage: 90/8MG (1 DOSAGE FORMS,1 IN 12 HR)
     Route: 048
  6. CONTRAVE [Suspect]
     Active Substance: BUPROPION HYDROCHLORIDE\NALTREXONE HYDROCHLORIDE
     Dosage: 90/8MG (1 DOSAGE FORMS,1 IN 12 HR)
     Route: 048
  7. CONTRAVE [Suspect]
     Active Substance: BUPROPION HYDROCHLORIDE\NALTREXONE HYDROCHLORIDE
     Dosage: 90/8MG (1 DOSAGE FORMS,1 IN 1 D)
     Route: 048
  8. CONTRAVE [Suspect]
     Active Substance: BUPROPION HYDROCHLORIDE\NALTREXONE HYDROCHLORIDE
     Dosage: 90/8MG (1 DOSAGE FORMS)
     Route: 048
  9. CONTRAVE [Suspect]
     Active Substance: BUPROPION HYDROCHLORIDE\NALTREXONE HYDROCHLORIDE
     Dosage: 90/8MG (1 DOSAGE FORMS)
     Route: 048
  10. CONTRAVE [Suspect]
     Active Substance: BUPROPION HYDROCHLORIDE\NALTREXONE HYDROCHLORIDE
     Dosage: 90/8MG (1 DOSAGE FORMS,1 IN 1 D)
     Route: 048
  11. CONTRAVE [Suspect]
     Active Substance: BUPROPION HYDROCHLORIDE\NALTREXONE HYDROCHLORIDE
     Dosage: 90/8MG (1 DOSAGE FORMS,1 IN 12 HR)
     Route: 048
  12. CONTRAVE [Suspect]
     Active Substance: BUPROPION HYDROCHLORIDE\NALTREXONE HYDROCHLORIDE
     Dosage: 90/8MG (2 DOSAGE FORMS,1 IN 12 HR)
     Route: 048
  13. CONTRAVE [Suspect]
     Active Substance: BUPROPION HYDROCHLORIDE\NALTREXONE HYDROCHLORIDE
     Dosage: 90/8MG (2 DOSAGE FORMS)
     Route: 048
  14. CONTRAVE [Suspect]
     Active Substance: BUPROPION HYDROCHLORIDE\NALTREXONE HYDROCHLORIDE
     Dosage: 90/8MG (1 DOSAGE FORMS,1 IN 12 HR)
     Route: 048
  15. SENNOSIDES [Suspect]
     Active Substance: SENNOSIDES
     Indication: Constipation
     Dosage: UNK
     Route: 048
  16. SUCRALFATE [Suspect]
     Active Substance: SUCRALFATE
     Indication: Gastrooesophageal reflux disease
     Dosage: UNK
     Route: 048
  17. SUCRALFATE [Suspect]
     Active Substance: SUCRALFATE
     Dosage: 2 GM (1 GM,1 IN 12 HR)
     Route: 048
  18. VAXZEVRIA [Suspect]
     Active Substance: AZD-1222
     Indication: COVID-19 prophylaxis
     Dosage: CONTAINS 10 DOSES OF 0.5ML, SOLUTION INTRAMUSCULAR
     Route: 030
  19. COVID-19 VACCINE NOS [Suspect]
     Active Substance: COVID-19 VACCINE NOS
     Indication: COVID-19 immunisation
     Dosage: 1 IN 1 TOTAL
     Route: 065
  20. SENNA LEAF [Suspect]
     Active Substance: SENNA LEAF
     Indication: Constipation
     Dosage: UNK
     Route: 048
  21. SENNA LEAF [Suspect]
     Active Substance: SENNA LEAF
     Dosage: DROPS ORAL
     Route: 048
  22. ESCITALOPRAM OXALATE [Suspect]
     Active Substance: ESCITALOPRAM OXALATE
     Indication: Anxiety
     Dosage: UNK
     Route: 065
  23. ASTRAZENECA COVID-19 VACCINE [Suspect]
     Active Substance: AZD-1222
     Indication: COVID-19 prophylaxis
     Dosage: UNK
     Route: 030
  24. BIFIDOBACTERIUM ANIMALIS LACTIS [Concomitant]
     Active Substance: BIFIDOBACTERIUM ANIMALIS LACTIS
     Indication: Gastrointestinal pain
     Dosage: UNK
  25. IRON [Concomitant]
     Active Substance: IRON
     Indication: Routine health maintenance
     Dosage: 1 DOSAGE FORMS,1 IN 1 D
     Route: 048
  26. IRON [Concomitant]
     Active Substance: IRON
     Dosage: UNK
     Route: 065
  27. METOCLOPRAMIDE [Concomitant]
     Active Substance: METOCLOPRAMIDE
     Indication: Gastrooesophageal reflux disease
     Dosage: 20 MG
     Route: 048
  28. METOCLOPRAMIDE [Concomitant]
     Active Substance: METOCLOPRAMIDE
     Dosage: UNK
     Route: 065
  29. PANTOPRAZOLE SODIUM [Concomitant]
     Active Substance: PANTOPRAZOLE SODIUM
     Indication: Gastrooesophageal reflux disease
     Dosage: 160 MG (80 MG,1 IN 12 HR)
     Route: 048
  30. VITAMIN D NOS [Concomitant]
     Active Substance: VITAMIN D NOS
     Indication: Routine health maintenance
     Dosage: 1 DOSAGE FORMS,1 IN 1 D
     Route: 048
  31. PANTOPRAZOLE [Concomitant]
     Active Substance: PANTOPRAZOLE
     Indication: Gastrooesophageal reflux disease
     Dosage: 80 MG (40 MG,1 IN 12 HR)
     Route: 048
  32. PANTOPRAZOLE [Concomitant]
     Active Substance: PANTOPRAZOLE
     Dosage: 160 MG (80 MG,1 IN 12 HR)
     Route: 048
  33. PANTOPRAZOLE [Concomitant]
     Active Substance: PANTOPRAZOLE
     Dosage: 160 MG (80 MG,1 IN 12 HR)
     Route: 048
  34. PANTOPRAZOLE [Concomitant]
     Active Substance: PANTOPRAZOLE
     Dosage: 1 IN 24 HR
     Route: 048
  35. PROBIOTICS NOS [Concomitant]
     Active Substance: PROBIOTICS NOS
     Indication: Gastrointestinal pain
     Dosage: 1 DOSAGE FORMS,1 IN 1 D
     Route: 048
  36. LINACLOTIDE [Concomitant]
     Active Substance: LINACLOTIDE
     Indication: Inflammatory bowel disease
     Dosage: 72 MG,1 IN 1 D
     Route: 048
  37. LINACLOTIDE [Concomitant]
     Active Substance: LINACLOTIDE
     Dosage: 216 MG (72 MG,1 IN 8 HR)
     Route: 048
  38. LINACLOTIDE [Concomitant]
     Active Substance: LINACLOTIDE
     Dosage: 216 MG (72 MG,1 IN 8 HR)
     Route: 048
  39. LINACLOTIDE [Concomitant]
     Active Substance: LINACLOTIDE
     Dosage: 72 MG,1 IN 24 HR
     Route: 048
  40. COPPER-CONTAINING INTRAUTERINE DEVICE (IUD) [Concomitant]
     Active Substance: COPPER
     Indication: Product used for unknown indication
     Dosage: UNK

REACTIONS (28)
  - Biliary colic [Not Recovered/Not Resolved]
  - Drug interaction [Not Recovered/Not Resolved]
  - Duodenogastric reflux [Not Recovered/Not Resolved]
  - Irritable bowel syndrome [Not Recovered/Not Resolved]
  - Eating disorder [Not Recovered/Not Resolved]
  - Food aversion [Not Recovered/Not Resolved]
  - Weight increased [Not Recovered/Not Resolved]
  - Hypersomnia [Not Recovered/Not Resolved]
  - Food craving [Not Recovered/Not Resolved]
  - Nasopharyngitis [Not Recovered/Not Resolved]
  - Pharyngitis streptococcal [Not Recovered/Not Resolved]
  - Oropharyngeal pain [Not Recovered/Not Resolved]
  - Pneumonia [Not Recovered/Not Resolved]
  - Stress [Not Recovered/Not Resolved]
  - Vomiting [Not Recovered/Not Resolved]
  - Hernia [Not Recovered/Not Resolved]
  - Malaise [Not Recovered/Not Resolved]
  - Nausea [Not Recovered/Not Resolved]
  - Dizziness [Not Recovered/Not Resolved]
  - Dehydration [Not Recovered/Not Resolved]
  - Headache [Not Recovered/Not Resolved]
  - Anxiety [Not Recovered/Not Resolved]
  - Nervousness [Not Recovered/Not Resolved]
  - Fatigue [Not Recovered/Not Resolved]
  - Therapeutic response unexpected [Not Recovered/Not Resolved]
  - Product dose omission issue [Not Recovered/Not Resolved]
  - Drug titration error [Not Recovered/Not Resolved]
  - Labelled drug-drug interaction medication error [Not Recovered/Not Resolved]
